FAERS Safety Report 5671317-8 (Version None)
Quarter: 2008Q1

REPORT INFORMATION
  Report Type: 
  Country: None (occurrence: None)
  Receive Date: 20080318
  Receipt Date: 20080312
  Transmission Date: 20080703
  Serious: Yes (Other)
  Sender: FDA-Public Use
  Company Number: US-PFIZER INC-2008023409

PATIENT
  Sex: Male
  Weight: 75 kg

DRUGS (4)
  1. CHANTIX [Suspect]
     Indication: SMOKING CESSATION THERAPY
     Dates: start: 20071201, end: 20080201
  2. LISINOPRIL [Concomitant]
     Indication: CARDIAC DISORDER
  3. METOPROLOL TARTRATE [Concomitant]
     Indication: CARDIAC DISORDER
  4. AMIODARONE HCL [Concomitant]
     Indication: CARDIAC DISORDER

REACTIONS (2)
  - SMOKER [None]
  - VASCULAR GRAFT [None]
